FAERS Safety Report 7460231-3 (Version None)
Quarter: 2011Q2

REPORT INFORMATION
  Report Type: 
  Country: None (occurrence: None)
  Receive Date: 20110505
  Receipt Date: 20110427
  Transmission Date: 20111010
  Serious: Yes (Other)
  Sender: FDA-Public Use
  Company Number: BE-NOVOPROD-327332

PATIENT
  Age: 80 Year
  Sex: Female
  Weight: 59 kg

DRUGS (4)
  1. TETEVEN [Concomitant]
     Indication: HYPERTENSION
     Dosage: 1 DF, QD
     Route: 048
     Dates: start: 20100801
  2. VICTOZA [Suspect]
     Indication: TYPE 2 DIABETES MELLITUS
     Dosage: UNK
     Route: 065
  3. CYMBALTA [Concomitant]
     Indication: FIBROMYALGIA
     Dosage: 1 DF, QD
     Route: 048
     Dates: start: 20100501
  4. NUTROF TOTAL [Concomitant]
     Indication: CATARACT

REACTIONS (1)
  - ASTHMA [None]
